FAERS Safety Report 8133656-0 (Version None)
Quarter: 2012Q1

REPORT INFORMATION
  Report Type: 
  Country: None (occurrence: None)
  Receive Date: 20120213
  Receipt Date: 20120203
  Transmission Date: 20120608
  Serious: Yes (Death, Other)
  Sender: FDA-Public Use
  Company Number: US-BRISTOL-MYERS SQUIBB COMPANY-16326688

PATIENT
  Age: 29 Year
  Sex: Male
  Weight: 58 kg

DRUGS (8)
  1. AMITRIPTYLINE HCL [Suspect]
     Dosage: 25MG TABLET. AT BED TIME
     Route: 048
     Dates: start: 20110921
  2. SULFAMETHOXAZOLE AND TRIMETHOPRIM DOUBLE STRENGTH [Suspect]
     Indication: PNEUMOCYSTIS JIROVECI PNEUMONIA
     Dosage: 800-160MG, ONE TABLET DAILY TWICE
     Route: 048
     Dates: start: 20110803
  3. AZITHROMYCIN [Suspect]
     Dosage: TABLET
     Route: 048
     Dates: start: 20110901
  4. NORVIR [Suspect]
     Dosage: TABLET
     Route: 048
     Dates: start: 20110824
  5. DESONIDE [Concomitant]
     Dosage: 2TIMES DAILY
     Route: 061
  6. CLOBETASOL PROPIONATE [Concomitant]
     Indication: RASH
     Dosage: CLOBETASOL PROPIONATE 0.05% OINTMENT TOPICALLY TO BODY EXTERNAL TWO TIMES DAILY
     Route: 061
  7. REYATAZ [Suspect]
     Indication: ACQUIRED IMMUNODEFICIENCY SYNDROME
     Dosage: CAPSULE
     Route: 048
     Dates: start: 20110824
  8. TRUVADA [Suspect]
     Dosage: TRUVADA200-300MGTABLET1
     Route: 048
     Dates: start: 20110927

REACTIONS (6)
  - GASTROENTERITIS [None]
  - WEIGHT DECREASED [None]
  - GASTROINTESTINAL DISORDER [None]
  - PNEUMONIA [None]
  - CANDIDIASIS [None]
  - NEUROPATHY PERIPHERAL [None]
